FAERS Safety Report 13428397 (Version 2)
Quarter: 2018Q2

REPORT INFORMATION
  Report Type: Spontaneous
  Country: US (occurrence: US)
  Receive Date: 20170411
  Receipt Date: 20180531
  Transmission Date: 20180711
  Serious: Yes (Other)
  Sender: FDA-Public Use
  Company Number: US-ARBOR PHARMACEUTICALS, LLC-US-2017ARB000397

PATIENT
  Sex: Female

DRUGS (1)
  1. HORIZANT [Suspect]
     Active Substance: GABAPENTIN ENACARBIL
     Indication: RESTLESS LEGS SYNDROME
     Dosage: 600 MG, QD

REACTIONS (1)
  - Suicidal ideation [Recovered/Resolved]
